FAERS Safety Report 5113065-9 (Version None)
Quarter: 2006Q3

REPORT INFORMATION
  Report Type: 
  Country: None (occurrence: None)
  Receive Date: 20060920
  Receipt Date: 20060911
  Transmission Date: 20061208
  Serious: Yes (Other)
  Sender: FDA-Public Use
  Company Number: 2006090444

PATIENT
  Sex: Male

DRUGS (2)
  1. RELPAX [Suspect]
     Indication: MIGRAINE
     Dates: start: 20060712
  2. VISTARIL [Suspect]
     Indication: VOMITING
     Dates: start: 20060712, end: 20060712

REACTIONS (2)
  - MUSCULOSKELETAL STIFFNESS [None]
  - NECK PAIN [None]
